FAERS Safety Report 4697998-3 (Version None)
Quarter: 2005Q2

REPORT INFORMATION
  Report Type: 
  Country: None (occurrence: None)
  Receive Date: 20050621
  Receipt Date: 20050608
  Transmission Date: 20051028
  Serious: Yes (Hospitalization)
  Sender: FDA-Public Use
  Company Number: GBR-2005-0001749

PATIENT
  Sex: Male

DRUGS (4)
  1. OXYCONTIN [Suspect]
     Dosage: 10 MG, BID
     Dates: start: 20030403
  2. CLONAZEPAM [Concomitant]
  3. CALCICHEW (CALCIUM CARBONATE) [Concomitant]
  4. XALIAL XL [Concomitant]

REACTIONS (1)
  - HOSPITALISATION [None]
